FAERS Safety Report 17913139 (Version 1)
Quarter: 2020Q2

REPORT INFORMATION
  Report Type: Spontaneous
  Country: US (occurrence: US)
  Receive Date: 20200618
  Receipt Date: 20200618
  Transmission Date: 20200714
  Serious: No
  Sender: FDA-Public Use
  Company Number: US-LEXICON PHARMACEUTICALS, INC-20-1606-00452

PATIENT
  Age: 50 Year
  Sex: Male

DRUGS (2)
  1. XERMELO [Suspect]
     Active Substance: TELOTRISTAT ETHYL
     Indication: CARCINOID TUMOUR PULMONARY
     Dates: start: 20200327
  2. XERMELO [Suspect]
     Active Substance: TELOTRISTAT ETHYL

REACTIONS (1)
  - Off label use [Not Recovered/Not Resolved]
